FAERS Safety Report 13534912 (Version 2)
Quarter: 2017Q2

REPORT INFORMATION
  Report Type: Spontaneous
  Country: US (occurrence: US)
  Receive Date: 20170511
  Receipt Date: 20170525
  Transmission Date: 20170830
  Serious: Yes (Other)
  Sender: FDA-Public Use
  Company Number: US-BEH-2017080178

PATIENT
  Sex: Female
  Weight: 71.66 kg

DRUGS (18)
  1. HIZENTRA [Suspect]
     Active Substance: HUMAN IMMUNOGLOBULIN G
     Dosage: UNK
     Route: 058
  2. ZINC. [Concomitant]
     Active Substance: ZINC
  3. HIZENTRA [Suspect]
     Active Substance: HUMAN IMMUNOGLOBULIN G
     Indication: HYPOGAMMAGLOBULINAEMIA
     Dosage: 15 G, QW
     Route: 058
     Dates: start: 20161025
  4. ALLERGY EYES [Concomitant]
  5. B COMPLEX                          /00212701/ [Concomitant]
     Active Substance: NIACINAMIDE\PYRIDOXINE\RIBOFLAVIN\THIAMINE
  6. LEVOFLOXACIN. [Concomitant]
     Active Substance: LEVOFLOXACIN
  7. BONIVA [Concomitant]
     Active Substance: IBANDRONATE SODIUM
  8. EPIPEN [Concomitant]
     Active Substance: EPINEPHRINE
  9. ESTRADIOL. [Concomitant]
     Active Substance: ESTRADIOL
  10. DIPHENHYDRAMINE. [Concomitant]
     Active Substance: DIPHENHYDRAMINE
  11. MAGNESIUM [Concomitant]
     Active Substance: MAGNESIUM
  12. HIZENTRA [Suspect]
     Active Substance: HUMAN IMMUNOGLOBULIN G
     Dosage: UNK
     Route: 058
  13. HIZENTRA [Suspect]
     Active Substance: HUMAN IMMUNOGLOBULIN G
     Dosage: UNK
     Route: 058
  14. ACETAMINOPHEN. [Concomitant]
     Active Substance: ACETAMINOPHEN
  15. IRON [Concomitant]
     Active Substance: IRON
  16. ALLOPURINOL. [Concomitant]
     Active Substance: ALLOPURINOL
  17. FISH OIL [Concomitant]
     Active Substance: FISH OIL
  18. VITAMIN D2 [Concomitant]
     Active Substance: ERGOCALCIFEROL

REACTIONS (1)
  - Drug ineffective [Not Recovered/Not Resolved]
